FAERS Safety Report 23369359 (Version 1)
Quarter: 2024Q1

REPORT INFORMATION
  Report Type: Report from Study
  Country: US (occurrence: US)
  Receive Date: 20240105
  Receipt Date: 20240105
  Transmission Date: 20240410
  Serious: Yes (Hospitalization)
  Sender: FDA-Public Use
  Company Number: US-JNJFOC-20231277272

PATIENT
  Sex: Female

DRUGS (1)
  1. REMICADE [Suspect]
     Active Substance: INFLIXIMAB
     Indication: Product used for unknown indication
     Route: 041

REACTIONS (7)
  - Pneumonia aspiration [Unknown]
  - Kidney infection [Unknown]
  - Meningitis [Unknown]
  - Sepsis [Unknown]
  - Escherichia urinary tract infection [Unknown]
  - Nephrolithiasis [Unknown]
  - Loss of consciousness [Unknown]
